FAERS Safety Report 10056118 (Version 2)
Quarter: 2014Q2

REPORT INFORMATION
  Report Type: Spontaneous
  Country: BR (occurrence: BR)
  Receive Date: 20140403
  Receipt Date: 20140403
  Transmission Date: 20141212
  Serious: Yes (Other)
  Sender: FDA-Public Use
  Company Number: BR-ASTRAZENECA-2010SE02148

PATIENT
  Age: 52 Year
  Sex: Female
  Weight: 61 kg

DRUGS (23)
  1. ATACAND [Suspect]
     Indication: HYPERTENSION
     Route: 048
     Dates: start: 2009, end: 2009
  2. ATACAND [Suspect]
     Indication: HYPERTENSION
     Route: 048
     Dates: start: 2009, end: 2009
  3. ATACAND [Suspect]
     Indication: HYPERTENSION
     Dosage: DAILY
     Route: 048
     Dates: start: 2009
  4. ATACAND [Suspect]
     Indication: HYPERTENSION
     Dosage: DAILY
     Route: 048
     Dates: start: 2009
  5. ATACAND [Suspect]
     Indication: HYPERTENSION
     Dosage: DAILY
     Route: 048
     Dates: start: 20100110, end: 20100113
  6. ATACAND [Suspect]
     Indication: HYPERTENSION
     Dosage: DAILY
     Route: 048
     Dates: start: 20100110, end: 20100113
  7. ATACAND [Suspect]
     Indication: HYPERTENSION
     Dosage: DAILY
     Route: 048
     Dates: end: 20111224
  8. ATACAND [Suspect]
     Indication: HYPERTENSION
     Dosage: DAILY
     Route: 048
     Dates: end: 20111224
  9. ATACAND [Suspect]
     Indication: HYPERTENSION
     Route: 048
     Dates: start: 20111225, end: 201201
  10. ATACAND [Suspect]
     Indication: HYPERTENSION
     Route: 048
     Dates: start: 20111225, end: 201201
  11. ATACAND [Suspect]
     Indication: HYPERTENSION
     Route: 048
     Dates: start: 201201, end: 201201
  12. ATACAND [Suspect]
     Indication: HYPERTENSION
     Route: 048
     Dates: start: 201201, end: 201201
  13. ATACAND [Suspect]
     Indication: HYPERTENSION
     Route: 048
     Dates: start: 201201
  14. ATACAND [Suspect]
     Indication: HYPERTENSION
     Route: 048
     Dates: start: 201201
  15. ATACAND HCT [Suspect]
     Indication: HYPERTENSION
     Dosage: 16/12.5 MG
     Route: 048
     Dates: start: 2009, end: 2009
  16. BROMAZEPAM [Suspect]
     Indication: ANXIETY
     Dosage: PRN
     Route: 048
     Dates: start: 2005
  17. UNSPECIFIED BETABLOCKER [Suspect]
     Indication: HYPERTENSION
     Route: 048
     Dates: start: 2009, end: 2009
  18. PURAN T4 [Concomitant]
     Indication: THYROIDECTOMY
     Route: 048
     Dates: start: 1991
  19. PURAN T4 [Concomitant]
     Indication: THYROIDECTOMY
     Dosage: DAILY
     Route: 048
     Dates: start: 1996, end: 2010
  20. PURAN T4 [Concomitant]
     Indication: THYROIDECTOMY
     Dosage: DAILY
     Route: 048
     Dates: start: 2010
  21. PURAN T4 [Concomitant]
     Indication: THYROIDECTOMY
     Route: 048
  22. FRONTAL [Concomitant]
     Indication: BLOOD PRESSURE ABNORMAL
     Dosage: AT NIGHT
     Route: 048
  23. VALIUM [Concomitant]
     Indication: PANIC ATTACK
     Route: 042

REACTIONS (9)
  - Blood pressure inadequately controlled [Unknown]
  - Heart rate increased [Recovered/Resolved]
  - Blood pressure decreased [Recovered/Resolved]
  - Confusional state [Recovered/Resolved]
  - Blood pressure increased [Recovered/Resolved]
  - Hepatic enzyme abnormal [Recovered/Resolved]
  - Blood thyroid stimulating hormone abnormal [Recovered/Resolved]
  - Off label use [Recovered/Resolved]
  - Drug ineffective [Not Recovered/Not Resolved]
